FAERS Safety Report 7817504-1 (Version None)
Quarter: 2011Q4

REPORT INFORMATION
  Report Type: 
  Country: None (occurrence: None)
  Receive Date: 20111012
  Receipt Date: 20110930
  Transmission Date: 20120403
  Serious: Yes (Congenital Anomaly, Other)
  Sender: FDA-Public Use
  Company Number: AUR-APL-2010-00736

PATIENT
  Sex: Male

DRUGS (3)
  1. NELFINAVIR MESYLATE [Suspect]
     Indication: HIV INFECTION
     Dosage: UNKNOWN (UNKNOWN), TRANSPLACENTAL
     Route: 064
     Dates: start: 20060215
  2. ZIDOVUDINE [Suspect]
     Indication: HIV INFECTION
     Dosage: UNKNOWN (UNKNOWN), TRANSPLACENTAL
     Route: 064
     Dates: start: 20060215
  3. LAMIVUDINE (LAMIVUDINE) (LAMIVUDINE) [Suspect]
     Indication: HIV INFECTION
     Dosage: UNKNOWN (UNKNOWN), TRANSPLACENTAL
     Route: 064
     Dates: start: 20060215

REACTIONS (2)
  - MATERNAL DRUGS AFFECTING FOETUS [None]
  - THALASSAEMIA [None]
